FAERS Safety Report 13090460 (Version 7)
Quarter: 2017Q2

REPORT INFORMATION
  Report Type: Report from Study
  Country: US (occurrence: US)
  Receive Date: 20170105
  Receipt Date: 20170613
  Transmission Date: 20170830
  Serious: Yes (Death, Hospitalization)
  Sender: FDA-Public Use
  Company Number: US-ACTELION-A-US2017-147857

PATIENT
  Age: 67 Year
  Sex: Female
  Weight: 75.28 kg

DRUGS (4)
  1. REMODULIN [Suspect]
     Active Substance: TREPROSTINIL
     Indication: PRODUCT USED FOR UNKNOWN INDICATION
     Dosage: 7 NG/KG, PER MIN
     Route: 065
  2. LASIX [Concomitant]
     Active Substance: FUROSEMIDE
     Dosage: UNK, BID
  3. OPSUMIT [Suspect]
     Active Substance: MACITENTAN
     Indication: PULMONARY ARTERIAL HYPERTENSION
     Dosage: 10 MG, QD
     Route: 048
     Dates: start: 20160629
  4. REMODULIN [Suspect]
     Active Substance: TREPROSTINIL
     Dosage: UNK
     Route: 042

REACTIONS (17)
  - Fall [Unknown]
  - Syncope [Unknown]
  - Death [Fatal]
  - Peripheral swelling [Unknown]
  - Headache [Recovered/Resolved]
  - Condition aggravated [Unknown]
  - Anaemia [Unknown]
  - Pulmonary arterial hypertension [Unknown]
  - Hypotension [Recovering/Resolving]
  - Head injury [Unknown]
  - Back injury [Unknown]
  - Dehydration [Unknown]
  - Urinary tract infection [Unknown]
  - Hypertension [Unknown]
  - Dyspnoea [Unknown]
  - Weight increased [Unknown]
  - Hypoxia [Unknown]

NARRATIVE: CASE EVENT DATE: 201612
